FAERS Safety Report 8694825 (Version 2)
Quarter: 2013Q4

REPORT INFORMATION
  Report Type: Spontaneous
  Country: DE (occurrence: DE)
  Receive Date: 20120731
  Receipt Date: 20131105
  Transmission Date: 20140711
  Serious: Yes (Life-Threatening)
  Sender: FDA-Public Use
  Company Number: DE-009507513-1207DEU011734

PATIENT
  Sex: Male

DRUGS (2)
  1. JANUVIA [Suspect]
     Indication: DIABETES MELLITUS
     Dosage: 50 MG, QD
     Route: 048
     Dates: start: 201207, end: 20120719
  2. JANUVIA [Suspect]
     Indication: DIABETIC COMPLICATION

REACTIONS (6)
  - Hypoglycaemia [Recovered/Resolved]
  - Disorientation [Recovered/Resolved]
  - Cold sweat [Recovered/Resolved]
  - Hallucination [Recovered/Resolved]
  - General physical health deterioration [Recovered/Resolved]
  - Blood pressure decreased [Recovered/Resolved]
